FAERS Safety Report 6930394-4 (Version None)
Quarter: 2010Q3

REPORT INFORMATION
  Report Type: 
  Country: None (occurrence: None)
  Receive Date: 20100818
  Receipt Date: 20100809
  Transmission Date: 20110219
  Serious: Yes (Hospitalization, Other)
  Sender: FDA-Public Use
  Company Number: CA-PFIZER INC-2010073526

PATIENT
  Age: 59 Year
  Sex: Female

DRUGS (4)
  1. CELEBREX [Suspect]
     Dosage: UNK
     Dates: end: 20100101
  2. BETASERON [Suspect]
     Indication: MULTIPLE SCLEROSIS
     Dosage: 8 MIU EVERY OTHER DAY
     Route: 058
     Dates: start: 20040517
  3. TYLENOL (CAPLET) [Concomitant]
     Dosage: UNK
  4. BACLOFEN [Concomitant]
     Dosage: 30 MG, 3X/DAY

REACTIONS (4)
  - HYPERTENSION [None]
  - MULTIPLE SCLEROSIS RELAPSE [None]
  - MUSCULAR WEAKNESS [None]
  - RENAL DISORDER [None]
